FAERS Safety Report 8381626-X (Version None)
Quarter: 2012Q2

REPORT INFORMATION
  Report Type: 
  Country: None (occurrence: None)
  Receive Date: 20120524
  Receipt Date: 20120515
  Transmission Date: 20120825
  Serious: Yes (Death, Hospitalization)
  Sender: FDA-Public Use
  Company Number: KR-BRISTOL-MYERS SQUIBB COMPANY-16202384

PATIENT
  Age: 67 Year
  Sex: Female
  Weight: 47 kg

DRUGS (31)
  1. PACLITAXEL [Suspect]
     Indication: GASTRIC CANCER
     Dosage: PRIOR TO EVENT: 16SEP11.
     Route: 042
     Dates: start: 20110803, end: 20110916
  2. DOMPERIDONE [Concomitant]
     Dates: start: 20110907, end: 20110930
  3. AMINOPHYLLINE [Concomitant]
     Dates: start: 20110928, end: 20110930
  4. TAZOBACTAM [Concomitant]
     Dates: start: 20110930, end: 20111013
  5. SODIUM CHLORIDE [Concomitant]
     Dates: start: 20111001, end: 20111003
  6. DEXTROSE [Concomitant]
  7. HYDROCHLOROTHIAZIDE [Concomitant]
     Dates: start: 20110101, end: 20111004
  8. ATENOLOL [Concomitant]
     Dates: start: 20110101, end: 20111004
  9. QUETIAPINE FUMARATE [Concomitant]
     Dates: start: 20110927, end: 20110927
  10. MEPERIDINE HCL [Concomitant]
     Dates: start: 20110928, end: 20110928
  11. IPRATROPIUM BROMIDE [Concomitant]
  12. INSULIN ASPART [Concomitant]
     Dates: start: 20111004, end: 20111017
  13. BETHANECHOL CHLORIDE [Concomitant]
     Dates: start: 20110928, end: 20110930
  14. ALBUTEROL SULFATE AUTOHALER [Concomitant]
  15. MIDAZOLAM [Concomitant]
     Dates: start: 20110930, end: 20110930
  16. MEGESTROL ACETATE [Concomitant]
     Dates: start: 20110907
  17. PREDNISOLONE [Concomitant]
     Dates: start: 20110927, end: 20111008
  18. ACETAMINOPHEN [Concomitant]
     Dates: start: 20110930, end: 20110930
  19. NICARDIPINE HCL [Concomitant]
     Dates: start: 20111001, end: 20111004
  20. DOPAMINE HCL [Concomitant]
     Dates: start: 20111010, end: 20111010
  21. ACETYLCYSTEINE [Concomitant]
     Dates: start: 20110907, end: 20110919
  22. SEPTRA [Concomitant]
     Dates: start: 20110927, end: 20111008
  23. ROCURONIUM BROMIDE [Concomitant]
     Dates: start: 20110930, end: 20110930
  24. VANCOMYCIN [Concomitant]
     Dates: start: 20110930, end: 20111013
  25. TAMSULOSIN HCL [Concomitant]
     Dates: start: 20110831, end: 20110930
  26. RANITIDINE [Concomitant]
     Dates: start: 20110928, end: 20110928
  27. BARIUM SULFATE [Concomitant]
     Dates: start: 20110101, end: 20110927
  28. ATROPINE [Concomitant]
     Dates: start: 20110928, end: 20110928
  29. MOXIFLOXACIN [Concomitant]
     Dates: start: 20110928, end: 20110928
  30. VECURONIUM BROMIDE [Concomitant]
     Dates: start: 20110930, end: 20111004
  31. FUROSEMIDE [Concomitant]

REACTIONS (3)
  - MULTI-ORGAN FAILURE [None]
  - PNEUMONITIS [None]
  - ACUTE RESPIRATORY DISTRESS SYNDROME [None]
